FAERS Safety Report 4842969-7 (Version None)
Quarter: 2005Q4

REPORT INFORMATION
  Report Type: 
  Country: None (occurrence: None)
  Receive Date: 20051201
  Receipt Date: 20051114
  Transmission Date: 20060501
  Serious: Yes (Hospitalization)
  Sender: FDA-Public Use
  Company Number: DE-SANOFI-SYNTHELABO-A04200500975

PATIENT
  Sex: Female
  Weight: 77 kg

DRUGS (5)
  1. ELOXATIN [Suspect]
     Indication: COLON CANCER
     Route: 041
     Dates: start: 20051031, end: 20051031
  2. FOLIN ACID [Concomitant]
     Indication: COLON CANCER
     Route: 041
     Dates: start: 20051031, end: 20051031
  3. FLUOROURACIL [Concomitant]
     Indication: COLON CANCER
     Route: 041
     Dates: start: 20051031, end: 20051031
  4. NEXIUM [Concomitant]
     Indication: OESOPHAGITIS
     Route: 048
  5. TAVEGIL [Concomitant]
     Indication: PRURITUS
     Route: 048

REACTIONS (6)
  - BONE PAIN [None]
  - CHILLS [None]
  - CYANOSIS [None]
  - NAUSEA [None]
  - PYREXIA [None]
  - RESPIRATORY FAILURE [None]
